FAERS Safety Report 7834404 (Version 2)
Quarter: 2013Q4

REPORT INFORMATION
  Report Type: Spontaneous
  Country: US (occurrence: US)
  Receive Date: 20110301
  Receipt Date: 20131015
  Transmission Date: 20140711
  Serious: No
  Sender: FDA-Public Use
  Company Number: US-PFIZER INC-2009281222

PATIENT
  Sex: Female

DRUGS (2)
  1. GLIPIZIDE [Suspect]
     Dosage: UNK
  2. ACTOS [Suspect]
     Dosage: UNK

REACTIONS (1)
  - Pancreatic disorder [Unknown]
